FAERS Safety Report 7652695-7 (Version None)
Quarter: 2011Q3

REPORT INFORMATION
  Report Type: 
  Country: None (occurrence: None)
  Receive Date: 20110728
  Receipt Date: 20110722
  Transmission Date: 20111222
  Serious: Yes (Death, Other)
  Sender: FDA-Public Use
  Company Number: TW-ACCORD-009327

PATIENT
  Age: 48 Year
  Sex: Male

DRUGS (6)
  1. CYTARABINE [Suspect]
     Indication: ACUTE MYELOID LEUKAEMIA
  2. CISPLATIN [Suspect]
     Indication: OESOPHAGEAL SQUAMOUS CELL CARCINOMA
     Dosage: 75.00 MG/M2-
  3. ETOPOSIDE [Suspect]
     Indication: ACUTE MYELOID LEUKAEMIA
  4. DAUNORUBICIN HCL [Suspect]
     Indication: ACUTE MYELOID LEUKAEMIA
     Dosage: 500.00 MG/M2;
  5. FLUOROURACIL [Suspect]
     Indication: OESOPHAGEAL SQUAMOUS CELL CARCINOMA
     Dosage: 1000.00-MG/M2-1.0 0 TIMES PER -1.0 DAYS,
  6. IDARUBICIN HCL [Suspect]
     Indication: ACUTE MYELOID LEUKAEMIA

REACTIONS (5)
  - OFF LABEL USE [None]
  - ACUTE MYELOID LEUKAEMIA [None]
  - MYELOFIBROSIS [None]
  - TREATMENT RELATED SECONDARY MALIGNANCY [None]
  - PNEUMONIA [None]
